FAERS Safety Report 22301561 (Version 2)
Quarter: 2023Q2

REPORT INFORMATION
  Report Type: Spontaneous
  Country: US (occurrence: US)
  Receive Date: 20230510
  Receipt Date: 20230517
  Transmission Date: 20230721
  Serious: No
  Sender: FDA-Public Use
  Company Number: US-ALKERMES INC.-ALK-2023-001940

PATIENT
  Age: 25 Year
  Sex: Female

DRUGS (1)
  1. VIVITROL [Suspect]
     Active Substance: NALTREXONE
     Indication: Drug dependence
     Dosage: 380 MILLIGRAM, QMO
     Route: 030
     Dates: start: 20230508

REACTIONS (5)
  - Feeling abnormal [Unknown]
  - Injection site reaction [Unknown]
  - Injection site pain [Unknown]
  - Abdominal pain upper [Unknown]
  - Hunger [Unknown]

NARRATIVE: CASE EVENT DATE: 20230508
